FAERS Safety Report 4791485-X (Version None)
Quarter: 2005Q4

REPORT INFORMATION
  Report Type: 
  Country: None (occurrence: None)
  Receive Date: 20051007
  Receipt Date: 20041015
  Transmission Date: 20060501
  Serious: No
  Sender: FDA-Public Use
  Company Number: US-BRISTOL-MYERS SQUIBB COMPANY-12734422

PATIENT
  Age: 62 Year
  Sex: Female
  Weight: 113 kg

DRUGS (13)
  1. AVAPRO [Suspect]
     Indication: HYPERTENSION
     Dosage: DOSE INCREASED FROM 150 MG TO 300 MG DAILY ON 13 AUG 2004 FOLLOWING OV.
     Route: 048
     Dates: start: 20040806
  2. DYAZIDE [Suspect]
  3. ALLOPURINOL [Concomitant]
  4. THYROID TAB [Concomitant]
  5. CALCIUM + VITAMIN D [Concomitant]
  6. VITAMIN E [Concomitant]
  7. MULTI-VITAMIN [Concomitant]
  8. BACTRIM [Concomitant]
  9. NEURONTIN [Concomitant]
  10. ELAVIL [Concomitant]
  11. ZOCOR [Concomitant]
  12. REGULAR INSULIN [Concomitant]
  13. NPH INSULIN [Concomitant]

REACTIONS (5)
  - BLOOD PRESSURE INCREASED [None]
  - DIZZINESS [None]
  - FATIGUE [None]
  - HEART RATE INCREASED [None]
  - PALPITATIONS [None]
